FAERS Safety Report 25368864 (Version 1)
Quarter: 2025Q2

REPORT INFORMATION
  Report Type: Spontaneous
  Country: JP (occurrence: JP)
  Receive Date: 20250528
  Receipt Date: 20250528
  Transmission Date: 20250716
  Serious: Yes (Other)
  Sender: PFIZER
  Company Number: JP-PFIZER INC-PV202500042447

PATIENT
  Age: 70 Year
  Sex: Female

DRUGS (2)
  1. IBRANCE [Suspect]
     Active Substance: PALBOCICLIB
     Indication: Breast cancer stage IV
     Dosage: 75 MG, DAILY
     Route: 048
  2. FASLODEX [Concomitant]
     Active Substance: FULVESTRANT
     Indication: Breast cancer stage IV

REACTIONS (2)
  - Thrombocytopenia [Recovering/Resolving]
  - Myelosuppression [Unknown]
